FAERS Safety Report 6076870-0 (Version None)
Quarter: 2009Q1

REPORT INFORMATION
  Report Type: 
  Country: None (occurrence: None)
  Receive Date: 20090211
  Receipt Date: 20090205
  Transmission Date: 20090719
  Serious: Yes (Hospitalization)
  Sender: FDA-Public Use
  Company Number: 1000003851

PATIENT
  Age: 43 Year
  Sex: Male

DRUGS (1)
  1. FLUMADINE [Suspect]
     Indication: VIRAL INFECTION
     Dosage: ORAL
     Route: 048
     Dates: start: 19960101, end: 19960101

REACTIONS (2)
  - BRACHIAL PLEXUS INJURY [None]
  - FACIAL PALSY [None]
